FAERS Safety Report 6856028-5 (Version None)
Quarter: 2010Q3

REPORT INFORMATION
  Report Type: 
  Country: None (occurrence: None)
  Receive Date: 20100719
  Receipt Date: 20100713
  Transmission Date: 20110219
  Serious: Yes (Other)
  Sender: FDA-Public Use
  Company Number: US-BRISTOL-MYERS SQUIBB COMPANY-15194129

PATIENT
  Age: 74 Year
  Sex: Male

DRUGS (6)
  1. COUMADIN [Suspect]
  2. LASIX [Suspect]
     Indication: HYPERTENSION
     Dosage: PREVIOUSLY TAKEN ONCE DAILY 2-3 YEARS AGO
     Route: 048
     Dates: start: 20100616
  3. LASIX [Suspect]
     Indication: OEDEMA PERIPHERAL
     Dosage: PREVIOUSLY TAKEN ONCE DAILY 2-3 YEARS AGO
     Route: 048
     Dates: start: 20100616
  4. LIPITOR [Concomitant]
  5. POTASSIUM CHLORIDE [Concomitant]
  6. DIGOXIN [Concomitant]

REACTIONS (5)
  - ASTHENIA [None]
  - BLOOD GLUCOSE DECREASED [None]
  - GASTROINTESTINAL DISORDER [None]
  - HYPOTENSION [None]
  - LOSS OF CONSCIOUSNESS [None]
